FAERS Safety Report 21038788 (Version 3)
Quarter: 2022Q3

REPORT INFORMATION
  Report Type: Report from Study
  Country: US (occurrence: US)
  Receive Date: 20220704
  Receipt Date: 20220728
  Transmission Date: 20221027
  Serious: Yes (Hospitalization)
  Sender: FDA-Public Use
  Company Number: US-PFIZER INC-PV202200008513

PATIENT
  Age: 84 Year
  Sex: Male

DRUGS (19)
  1. AXITINIB [Suspect]
     Active Substance: AXITINIB
     Indication: Malignant melanoma
     Dosage: 5 MG, 2X/DAY
     Route: 048
     Dates: start: 20220610, end: 20220619
  2. AXITINIB [Suspect]
     Active Substance: AXITINIB
     Dosage: 3 MG, 2X/DAY (DOSE LEVEL-1)
     Route: 048
     Dates: start: 20220629, end: 20220707
  3. AXITINIB [Suspect]
     Active Substance: AXITINIB
     Dosage: 2 MG, BID (DOSE LEVEL-2)
     Route: 048
     Dates: start: 20220715, end: 20220719
  4. NIVOLUMAB [Suspect]
     Active Substance: NIVOLUMAB
     Indication: Malignant melanoma
     Dosage: 480 MG (OF 10 MG/ML) IV OVER 30 MINUTES IN NS 100 ML EVERY 28 DAYS
     Route: 042
     Dates: start: 20220610
  5. AMLODIPINE [Concomitant]
     Active Substance: AMLODIPINE BESYLATE
     Indication: Hypertension
     Dosage: 7.5 MG, DAILY
     Route: 048
     Dates: start: 2021
  6. MIRALAX [Concomitant]
     Active Substance: POLYETHYLENE GLYCOL 3350
     Indication: Constipation
     Dosage: UNK, AS NEEDED
     Route: 048
     Dates: start: 2018
  7. NORTRIPTYLINE HYDROCHLORIDE [Concomitant]
     Active Substance: NORTRIPTYLINE HYDROCHLORIDE
     Indication: Cataract operation
     Dosage: 50 MG, DAILY
     Route: 048
     Dates: start: 2021
  8. SIMVASTATIN [Concomitant]
     Active Substance: SIMVASTATIN
     Indication: Hyperlipidaemia
     Dosage: 10 MG, DAILY
     Route: 048
     Dates: start: 1990
  9. TRIAMCINOLONE ACETONIDE [Concomitant]
     Active Substance: TRIAMCINOLONE ACETONIDE
     Indication: Rash
     Dosage: CREAM TOP PRN
     Route: 061
     Dates: start: 2019
  10. TADALAFIL [Concomitant]
     Active Substance: TADALAFIL
     Indication: Prostatic disorder
     Dosage: 10 MG, DAILY
     Route: 048
     Dates: start: 2021
  11. METOPROLOL SUCCINATE [Concomitant]
     Active Substance: METOPROLOL SUCCINATE
     Indication: Hypertension
     Dosage: 50 MG, DAILY
     Route: 048
     Dates: start: 2021
  12. LUPRON [Concomitant]
     Active Substance: LEUPROLIDE ACETATE
     Indication: Prostate cancer
     Dosage: 22.5  MG, DAILY
     Route: 030
     Dates: start: 2019
  13. METHYLPHENIDATE [Concomitant]
     Active Substance: METHYLPHENIDATE
     Indication: Fatigue
     Dosage: 2.5 MG, 2X/DAY, C1D1
     Route: 048
     Dates: start: 20220609
  14. FLOMAX [Concomitant]
     Active Substance: TAMSULOSIN HYDROCHLORIDE
     Indication: Prostatomegaly
     Dosage: 0.4 MG, DAILY, BASELINE
     Route: 048
     Dates: start: 2021
  15. COLACE [Concomitant]
     Active Substance: DOCUSATE SODIUM
     Indication: Constipation
     Dosage: 1000 MG, 2X/DAY, BASELINE
     Dates: start: 2020
  16. SODIUM CHLORIDE [Concomitant]
     Active Substance: SODIUM CHLORIDE
     Indication: Asthenia
     Dosage: 1000 ML
     Route: 042
     Dates: start: 20220622, end: 20220622
  17. SODIUM CHLORIDE [Concomitant]
     Active Substance: SODIUM CHLORIDE
     Indication: Nasal dryness
     Dosage: 2 SPRAYS
     Dates: start: 20220623, end: 20220623
  18. FAMOTIDINE [Concomitant]
     Active Substance: FAMOTIDINE
     Indication: Dyspepsia
     Dosage: 20 MG, BID
     Route: 048
     Dates: start: 20220715
  19. SODIUM CHLORIDE [Concomitant]
     Active Substance: SODIUM CHLORIDE
     Indication: Blood creatinine increased
     Dosage: 1000 ML, C2D1
     Route: 042
     Dates: start: 20220708, end: 20220708

REACTIONS (4)
  - Muscular weakness [Recovered/Resolved with Sequelae]
  - Confusional state [Recovered/Resolved with Sequelae]
  - Laryngeal haemorrhage [Recovered/Resolved with Sequelae]
  - Fatigue [Recovered/Resolved with Sequelae]

NARRATIVE: CASE EVENT DATE: 20220622
